FAERS Safety Report 17213777 (Version 1)
Quarter: 2019Q4

REPORT INFORMATION
  Report Type: Report from Study
  Country: CA (occurrence: CA)
  Receive Date: 20191230
  Receipt Date: 20191230
  Transmission Date: 20200122
  Serious: Yes (Other)
  Sender: FDA-Public Use
  Company Number: CA-PFIZER INC-2019555019

PATIENT
  Age: 62 Year
  Sex: Male

DRUGS (7)
  1. CIMZIA [Concomitant]
     Active Substance: CERTOLIZUMAB PEGOL
     Route: 058
  2. HUMIRA [Concomitant]
     Active Substance: ADALIMUMAB
     Dosage: 1 DF, MONTHLY
     Route: 058
  3. COSENTYX [Suspect]
     Active Substance: SECUKINUMAB
     Indication: PSORIATIC ARTHROPATHY
     Dosage: 300 MG, MONTHLY
     Route: 058
  4. NALTREXONE [Concomitant]
     Active Substance: NALTREXONE
     Dosage: 5 MG, 1X/DAY
     Route: 048
  5. OTEZLA [Concomitant]
     Active Substance: APREMILAST
  6. METHOTREXATE SODIUM. [Suspect]
     Active Substance: METHOTREXATE SODIUM
  7. LEFLUNOMIDE. [Suspect]
     Active Substance: LEFLUNOMIDE

REACTIONS (18)
  - Chills [Unknown]
  - Depression [Unknown]
  - Nausea [Unknown]
  - Arthralgia [Unknown]
  - Cough [Unknown]
  - Fatigue [Unknown]
  - Headache [Unknown]
  - Nasopharyngitis [Unknown]
  - Dehydration [Unknown]
  - Diarrhoea [Unknown]
  - Drug ineffective [Unknown]
  - Dyspnoea [Unknown]
  - Feeling abnormal [Unknown]
  - Malnutrition [Unknown]
  - Muscle atrophy [Unknown]
  - Abdominal discomfort [Unknown]
  - Flatulence [Unknown]
  - Pneumonia [Unknown]
